FAERS Safety Report 17436283 (Version 1)
Quarter: 2020Q1

REPORT INFORMATION
  Report Type: Spontaneous
  Country: US (occurrence: US)
  Receive Date: 20200219
  Receipt Date: 20200219
  Transmission Date: 20200409
  Serious: No
  Sender: FDA-Public Use
  Company Number: US-LANTHEUS-LMI-2019-00164

PATIENT
  Age: 47 Year
  Sex: Male

DRUGS (1)
  1. DEFINITY [Suspect]
     Active Substance: PERFLUTREN
     Indication: ECHOCARDIOGRAM
     Dosage: 5 ML, (1.5 ML DEFINITY PREPARED IN AN UNSPECIFIED AMOUNT OF DILUENT)
     Route: 065
     Dates: start: 20190304, end: 20190304

REACTIONS (3)
  - Musculoskeletal pain [Recovered/Resolved]
  - Muscle tightness [Recovered/Resolved]
  - Back pain [Recovered/Resolved]

NARRATIVE: CASE EVENT DATE: 20190304
